FAERS Safety Report 8437352-1 (Version None)
Quarter: 2012Q2

REPORT INFORMATION
  Report Type: 
  Country: None (occurrence: None)
  Receive Date: 20120614
  Receipt Date: 20120312
  Transmission Date: 20120825
  Serious: No
  Sender: FDA-Public Use
  Company Number: US-AMGEN-USASP2012015549

PATIENT
  Age: 84 Year
  Sex: Female

DRUGS (6)
  1. CELEXA [Concomitant]
     Dosage: UNK
  2. PROLIA [Suspect]
     Indication: OSTEOPOROSIS POSTMENOPAUSAL
     Dosage: UNK UNK, Q6MO
     Dates: start: 20120301
  3. DULCOLAX [Concomitant]
     Dosage: UNK
  4. PROTONIX [Concomitant]
     Dosage: UNK
  5. OXYCODONE HCL [Concomitant]
     Dosage: UNK
  6. NORVASC [Concomitant]
     Dosage: UNK

REACTIONS (2)
  - PROCTALGIA [None]
  - CONSTIPATION [None]
